FAERS Safety Report 14377439 (Version 2)
Quarter: 2018Q3

REPORT INFORMATION
  Report Type: Spontaneous
  Country: US (occurrence: US)
  Receive Date: 20180111
  Receipt Date: 20180703
  Transmission Date: 20181010
  Serious: Yes (Death, Hospitalization)
  Sender: FDA-Public Use
  Company Number: US-DSJP-DSU-2017-137205

PATIENT

DRUGS (1)
  1. BENICAR [Suspect]
     Active Substance: OLMESARTAN MEDOXOMIL
     Indication: PRODUCT USED FOR UNKNOWN INDICATION
     Dosage: 20MG HALF TABLET, QD
     Route: 048
     Dates: start: 20130624, end: 20131115

REACTIONS (6)
  - Cerebral haemorrhage [Fatal]
  - Blood pressure decreased [Unknown]
  - Drug administration error [Unknown]
  - Sprue-like enteropathy [Recovering/Resolving]
  - Dysphagia [Unknown]
  - Constipation [Unknown]

NARRATIVE: CASE EVENT DATE: 20130812
